FAERS Safety Report 11753969 (Version 4)
Quarter: 2018Q1

REPORT INFORMATION
  Report Type: Report from Study
  Country: GB (occurrence: GB)
  Receive Date: 20151119
  Receipt Date: 20180207
  Transmission Date: 20180508
  Serious: Yes (Hospitalization, Other)
  Sender: FDA-Public Use
  Company Number: GB-AMGEN-GBRSL2015121713

PATIENT
  Age: 62 Year
  Sex: Male

DRUGS (2)
  1. ARANESP [Suspect]
     Active Substance: DARBEPOETIN ALFA
     Indication: PRODUCT USED FOR UNKNOWN INDICATION
     Dosage: 40 MUG, UNK
     Route: 065
  2. ARANESP [Suspect]
     Active Substance: DARBEPOETIN ALFA
     Dosage: 60 MUG, UNK
     Route: 065

REACTIONS (5)
  - Transplant failure [Unknown]
  - Peritonitis [Unknown]
  - Renal failure [Unknown]
  - Transplant [Unknown]
  - Peritoneal dialysis [Unknown]

NARRATIVE: CASE EVENT DATE: 201801
